FAERS Safety Report 5656677-6 (Version None)
Quarter: 2008Q1

REPORT INFORMATION
  Report Type: 
  Country: None (occurrence: None)
  Receive Date: 20080310
  Receipt Date: 20080227
  Transmission Date: 20080703
  Serious: Yes (Hospitalization)
  Sender: FDA-Public Use
  Company Number: US-KINGPHARMUSA00001-K200800256

PATIENT

DRUGS (13)
  1. ALTACE [Suspect]
     Indication: HYPERTENSION
     Route: 048
  2. HUMALOG [Suspect]
     Indication: TYPE 1 DIABETES MELLITUS
     Dosage: 30 IU, BID
     Route: 058
     Dates: end: 20071003
  3. HUMALOG [Suspect]
     Dosage: 26 IU, BID
     Route: 058
  4. ACEBUTOLOL [Suspect]
     Indication: HYPERTENSION
     Dosage: UNK, UNK
     Route: 048
  5. PLAVIX [Concomitant]
     Indication: ATHEROSCLEROSIS PROPHYLAXIS
     Route: 048
  6. ZOCOR [Concomitant]
     Indication: HYPERCHOLESTEROLAEMIA
     Route: 048
  7. EUROBIOL /00014701/ [Concomitant]
     Indication: PANCREATIC INSUFFICIENCY
     Route: 048
  8. ADANCOR [Concomitant]
     Route: 048
  9. CARBOSYMAG /01711301/ [Concomitant]
     Indication: DYSPEPSIA
     Route: 048
  10. SINEMET [Concomitant]
     Indication: PARKINSONISM
     Route: 048
  11. XANAX [Concomitant]
     Indication: ANXIETY
     Route: 048
  12. KARDEGIC /00002703/ [Concomitant]
     Route: 048
  13. AMLOR [Concomitant]
     Indication: HYPERTENSION
     Dosage: UNK, UNK
     Route: 048

REACTIONS (6)
  - HYPERHIDROSIS [None]
  - HYPERTENSION [None]
  - HYPOGLYCAEMIC COMA [None]
  - HYPOTHERMIA [None]
  - HYPOTONIA [None]
  - LOSS OF CONSCIOUSNESS [None]
